FAERS Safety Report 20087139 (Version 1)
Quarter: 2021Q4

REPORT INFORMATION
  Report Type: Spontaneous
  Country: DE (occurrence: DE)
  Receive Date: 20211118
  Receipt Date: 20211118
  Transmission Date: 20220303
  Serious: Yes (Hospitalization, Other)
  Sender: FDA-Public Use
  Company Number: DE-EMBRYOTOX-202002533

PATIENT
  Age: 1 Day
  Sex: Male
  Weight: 3.23 kg

DRUGS (9)
  1. TRAMADOL [Suspect]
     Active Substance: TRAMADOL
     Indication: Product used for unknown indication
     Dosage: UNK [800 [MG / D (-200)] / 200 MG / D UNTIL ~ GW 20, 6TH TO 8TH MONTHS: 700 TO 800 MG / D]
     Route: 064
  2. CLONIDINE [Concomitant]
     Active Substance: CLONIDINE
     Indication: Product used for unknown indication
     Dosage: UNK, 3 [MG / D (UP TO 2.1)]
     Route: 064
  3. INFLUVAC TETRA [Concomitant]
     Active Substance: INFLUENZA VIRUS VACCINE QUADRIVALENT TYPE A+B
     Indication: Immunisation
     Dosage: UNK
     Route: 064
     Dates: start: 20200402, end: 20200402
  4. METOPROLOL [Concomitant]
     Active Substance: METOPROLOL
     Indication: Hypertension
     Dosage: UNK (SMALLEST DOSE)
     Route: 064
  5. OMEPRAZOL                          /00661201/ [Concomitant]
     Indication: Gastrooesophageal reflux disease
     Dosage: 20 MILLIGRAM, QD
     Route: 064
     Dates: start: 20191221, end: 20200924
  6. METHYLDOPA [Concomitant]
     Active Substance: METHYLDOPA
     Indication: Withdrawal hypertension
     Dosage: UNK 1500 [MG/D (UP TO 1000, 4-6X250)]
     Route: 064
     Dates: start: 20200203, end: 20200206
  7. METHYLDOPA [Concomitant]
     Active Substance: METHYLDOPA
     Indication: Hypertension
     Dosage: 250 MILLIGRAM, QD
     Route: 064
  8. TIANEPTINE SODIUM [Concomitant]
     Active Substance: TIANEPTINE SODIUM
     Indication: Depression
     Dosage: UNK 7250 [MG / D (UP TO 5800, 40-50X145)]
     Route: 064
  9. TILIDINE [Concomitant]
     Active Substance: TILIDINE
     Indication: Product used for unknown indication
     Dosage: 50 MILLIGRAM, QD
     Route: 064

REACTIONS (7)
  - Reflexes abnormal [Recovered/Resolved]
  - Crying [Recovered/Resolved]
  - Drug withdrawal syndrome neonatal [Recovered/Resolved]
  - Restlessness [Recovered/Resolved]
  - Diarrhoea [Recovered/Resolved]
  - Drug abuse [Unknown]
  - Foetal exposure during pregnancy [Unknown]

NARRATIVE: CASE EVENT DATE: 20200924
